FAERS Safety Report 4939345-5 (Version None)
Quarter: 2006Q1

REPORT INFORMATION
  Report Type: 
  Country: None (occurrence: None)
  Receive Date: 20060306
  Receipt Date: 20060223
  Transmission Date: 20060701
  Serious: Yes (Other)
  Sender: FDA-Public Use
  Company Number: 2005S1000166

PATIENT
  Age: 30 Year
  Sex: Female

DRUGS (1)
  1. ACITRETIN [Suspect]
     Indication: PSORIASIS
     Dosage: 10 MG; QD; PO
     Route: 048
     Dates: start: 19951005, end: 20041214

REACTIONS (3)
  - DRUG EXPOSURE BEFORE PREGNANCY [None]
  - INDUCED LABOUR [None]
  - PREGNANCY [None]
